FAERS Safety Report 16599032 (Version 1)
Quarter: 2019Q3

REPORT INFORMATION
  Report Type: Other
  Country: FR (occurrence: FR)
  Receive Date: 20190719
  Receipt Date: 20190719
  Transmission Date: 20191004
  Serious: Yes (Hospitalization)
  Sender: FDA-Public Use
  Company Number: FR-INCYTE CORPORATION-2019IN007076

PATIENT

DRUGS (3)
  1. JAKAVI [Suspect]
     Active Substance: RUXOLITINIB
     Indication: ESSENTIAL THROMBOCYTHAEMIA
     Dosage: 20 MG, QD
     Route: 048
     Dates: start: 201709
  2. EPREX [Suspect]
     Active Substance: ERYTHROPOIETIN
     Indication: ESSENTIAL THROMBOCYTHAEMIA
     Dosage: 20000 IU, QW
     Route: 058
     Dates: start: 201808
  3. HYDREA [Suspect]
     Active Substance: HYDROXYUREA
     Indication: ESSENTIAL THROMBOCYTHAEMIA
     Dosage: UNK
     Route: 048

REACTIONS (1)
  - Tongue neoplasm [Not Recovered/Not Resolved]

NARRATIVE: CASE EVENT DATE: 20190502
